FAERS Safety Report 6824784-8 (Version None)
Quarter: 2010Q3

REPORT INFORMATION
  Report Type: 
  Country: None (occurrence: None)
  Receive Date: 20100708
  Receipt Date: 20100701
  Transmission Date: 20110219
  Serious: Yes (Other)
  Sender: FDA-Public Use
  Company Number: GB-B.I. PHARMACEUTICALS,INC./RIDGEFIELD-2010-UK-00269UK

PATIENT
  Sex: Female

DRUGS (6)
  1. PRAMIPEXOLE DIHYDROCHLORIDE [Suspect]
     Indication: DRUG EFFECT DECREASED
     Dosage: INCREASED FROM AN UNKNOWN DOSE TO 6MG SALT DAILY.
  2. PRAMIPEXOLE DIHYDROCHLORIDE [Suspect]
     Dosage: 6 MG
  3. ENTACAPONE [Suspect]
     Indication: PARKINSON'S DISEASE
     Dosage: 800 MG
  4. L-DOPA [Suspect]
     Indication: PARKINSON'S DISEASE
     Dates: start: 19700101
  5. L-DOPA [Suspect]
     Dosage: 600 MG
     Dates: start: 20060101
  6. L-DOPA [Suspect]
     Dosage: 400 MG

REACTIONS (8)
  - ABNORMAL BEHAVIOUR [None]
  - COMPULSIVE SHOPPING [None]
  - HYPOMANIA [None]
  - IMPULSE-CONTROL DISORDER [None]
  - MENTAL DISORDER [None]
  - OBSESSIVE-COMPULSIVE DISORDER [None]
  - OVERDOSE [None]
  - PATHOLOGICAL GAMBLING [None]
